FAERS Safety Report 7725673-7 (Version None)
Quarter: 2011Q3

REPORT INFORMATION
  Report Type: 
  Country: None (occurrence: None)
  Receive Date: 20110902
  Receipt Date: 20110823
  Transmission Date: 20111222
  Serious: Yes (Hospitalization)
  Sender: FDA-Public Use
  Company Number: PHEH2011US02323

PATIENT
  Sex: Male

DRUGS (1)
  1. TOBI [Suspect]
     Indication: BRONCHIECTASIS
     Dosage: 300 MG, BID
     Dates: start: 20100801

REACTIONS (6)
  - HEART RATE IRREGULAR [None]
  - HEART RATE DECREASED [None]
  - SICK SINUS SYNDROME [None]
  - HEART RATE INCREASED [None]
  - ATRIOVENTRICULAR BLOCK [None]
  - ATRIAL FIBRILLATION [None]
